FAERS Safety Report 11886327 (Version 1)
Quarter: 2016Q1

REPORT INFORMATION
  Report Type: Spontaneous
  Country: GB (occurrence: GB)
  Receive Date: 20160104
  Receipt Date: 20160104
  Transmission Date: 20160526
  Serious: Yes (Death, Hospitalization)
  Sender: FDA-Public Use
  Company Number: GB-IPCA LABORATORIES LIMITED-IPC201512-000916

PATIENT
  Age: 56 Year
  Sex: Female

DRUGS (3)
  1. HYDROCORTISONE. [Suspect]
     Active Substance: HYDROCORTISONE
  2. PENICILLIN V [Concomitant]
     Active Substance: PENICILLIN V
  3. WARFARIN [Suspect]
     Active Substance: WARFARIN

REACTIONS (2)
  - Septic shock [Unknown]
  - Calciphylaxis [Fatal]
